FAERS Safety Report 22184031 (Version 1)
Quarter: 2023Q2

REPORT INFORMATION
  Report Type: Spontaneous
  Country: JP (occurrence: JP)
  Receive Date: 20230407
  Receipt Date: 20230407
  Transmission Date: 20230722
  Serious: Yes (Hospitalization, Other)
  Sender: FDA-Public Use
  Company Number: JP-TAIHO-2023-002437

PATIENT
  Age: 74 Year
  Sex: Female
  Weight: 53.7 kg

DRUGS (3)
  1. ABRAXANE [Suspect]
     Active Substance: PACLITAXEL
     Indication: Lung neoplasm malignant
     Dosage: DAILY DOSE: 140 MILLIGRAM(S)
     Route: 041
     Dates: start: 20170726, end: 20170809
  2. ABRAXANE [Suspect]
     Active Substance: PACLITAXEL
     Dosage: DAILY DOSE: 116 MILLIGRAM(S)
     Route: 041
     Dates: start: 20170913, end: 20171122
  3. CARBOPLATIN [Suspect]
     Active Substance: CARBOPLATIN
     Indication: Lung neoplasm malignant
     Route: 041
     Dates: start: 20170726, end: 20170726

REACTIONS (2)
  - Febrile neutropenia [Recovered/Resolved]
  - Productive cough [Unknown]

NARRATIVE: CASE EVENT DATE: 20170814
